FAERS Safety Report 9531961 (Version 1)
Quarter: 2013Q3

REPORT INFORMATION
  Report Type: Spontaneous
  Country: JP (occurrence: JP)
  Receive Date: 20130918
  Receipt Date: 20130918
  Transmission Date: 20140515
  Serious: Yes (Other)
  Sender: FDA-Public Use
  Company Number: JP-SANOFI-AVENTIS-2013SA088720

PATIENT
  Sex: Female

DRUGS (3)
  1. TAXOTERE [Suspect]
     Indication: NEOPLASM MALIGNANT
     Route: 042
     Dates: start: 20130828
  2. PACLITAXEL [Concomitant]
     Indication: NEOPLASM MALIGNANT
     Dosage: 6 COURSES
  3. PACLITAXEL [Concomitant]
     Indication: NEOPLASM MALIGNANT
     Dosage: DOSE REDUCED

REACTIONS (2)
  - Paralysis [Unknown]
  - Condition aggravated [Unknown]
